FAERS Safety Report 23248366 (Version 1)
Quarter: 2023Q4

REPORT INFORMATION
  Report Type: Report from Study
  Country: CN (occurrence: CN)
  Receive Date: 20231201
  Receipt Date: 20231201
  Transmission Date: 20240110
  Serious: Yes (Death, Hospitalization)
  Sender: FDA-Public Use
  Company Number: CN-002147023-NVSC2023CN164395

PATIENT
  Age: 50 Year
  Sex: Female
  Weight: 63.3 kg

DRUGS (3)
  1. FEMARA [Suspect]
     Active Substance: LETROZOLE
     Indication: Breast cancer
     Dosage: 2.5 MG, QD (STRENGTH: 2.5 MG)
     Route: 048
     Dates: start: 20220809, end: 20230712
  2. OXYCODONE AND ACETAMINOPHEN [Concomitant]
     Active Substance: ACETAMINOPHEN\OXYCODONE HYDROCHLORIDE
     Indication: Pain
     Dosage: 330 MG, Q6H
     Route: 048
     Dates: start: 20220612
  3. CALCITRIOL [Concomitant]
     Active Substance: CALCITRIOL
     Indication: Prophylaxis
     Dosage: 0.25 UG, QD
     Route: 048
     Dates: start: 20230612

REACTIONS (19)
  - Death [Fatal]
  - Atrioventricular block first degree [Unknown]
  - Left atrial volume abnormal [Unknown]
  - Electrocardiogram ST-T change [Unknown]
  - Pulmonary mass [Unknown]
  - Lymphadenopathy [Unknown]
  - Pneumonia bacterial [Unknown]
  - Cystic lung disease [Unknown]
  - Pleural thickening [Unknown]
  - Capripox viral infection [Unknown]
  - Pleural effusion [Unknown]
  - Bone pain [Recovering/Resolving]
  - Breast cancer [Unknown]
  - Malignant neoplasm progression [Unknown]
  - Aspartate aminotransferase increased [Unknown]
  - Gamma-glutamyltransferase increased [Unknown]
  - Hypertriglyceridaemia [Unknown]
  - Blood creatinine increased [Unknown]
  - Hyperuricaemia [Unknown]

NARRATIVE: CASE EVENT DATE: 20230712
